FAERS Safety Report 26102286 (Version 2)
Quarter: 2025Q4

REPORT INFORMATION
  Report Type: Spontaneous
  Country: EU (occurrence: EU)
  Receive Date: 20251128
  Receipt Date: 20251211
  Transmission Date: 20260117
  Serious: Yes (Other)
  Sender: ABBVIE
  Company Number: EU-ABBVIE-6565106

PATIENT
  Age: 77 Year

DRUGS (2)
  1. RINVOQ [Suspect]
     Active Substance: UPADACITINIB
     Indication: Giant cell arteritis
     Route: 048
  2. RINVOQ [Suspect]
     Active Substance: UPADACITINIB
     Indication: Giant cell arteritis
     Route: 048

REACTIONS (4)
  - Bone loss [Recovered/Resolved]
  - Implant site pain [Recovered/Resolved]
  - Implant site inflammation [Not Recovered/Not Resolved]
  - Implant site inflammation [Recovered/Resolved]
